FAERS Safety Report 5240311-3 (Version None)
Quarter: 2007Q1

REPORT INFORMATION
  Report Type: 
  Country: None (occurrence: None)
  Receive Date: 20061208
  Receipt Date: 20050801
  Transmission Date: 20070707
  Serious: Yes (Other)
  Sender: FDA-Public Use
  Company Number: 2005UW11355

PATIENT
  Age: 55 Year
  Sex: Male
  Weight: 90.718 kg

DRUGS (7)
  1. CRESTOR [Suspect]
     Indication: BLOOD CHOLESTEROL INCREASED
     Dosage: 10 MG DAILY PO
     Route: 048
     Dates: start: 20050506
  2. ASPIRIN [Concomitant]
  3. PLAVIX [Concomitant]
  4. ATENOLOL [Concomitant]
  5. LISINOPRIL [Concomitant]
  6. TRICOR [Concomitant]
  7. COUMADIN [Concomitant]

REACTIONS (3)
  - BLOOD URINE PRESENT [None]
  - NEPHROLITHIASIS [None]
  - PAIN [None]
